FAERS Safety Report 9680677 (Version 3)
Quarter: 2014Q1

REPORT INFORMATION
  Report Type: Spontaneous
  Country: US (occurrence: US)
  Receive Date: 20131111
  Receipt Date: 20140318
  Transmission Date: 20141002
  Serious: Yes (Hospitalization)
  Sender: FDA-Public Use
  Company Number: US-BAYER-2013-134025

PATIENT
  Age: 21 Year
  Sex: Female
  Weight: 59.86 kg

DRUGS (2)
  1. MIRENA [Suspect]
     Indication: CONTRACEPTION
     Dosage: 20 MCG/24HR, CONT
     Route: 015
     Dates: start: 20111110, end: 20130311
  2. NORCO [Concomitant]
     Dosage: 5 MG, UNK

REACTIONS (13)
  - Device dislocation [None]
  - Procedural pain [None]
  - Device difficult to use [None]
  - Device issue [None]
  - Abdominal pain lower [None]
  - Medical device discomfort [None]
  - Injury [None]
  - Pain [None]
  - Emotional distress [None]
  - Device dislocation [None]
  - Dyspareunia [None]
  - Menstruation irregular [None]
  - Nausea [None]
